FAERS Safety Report 4655136-7 (Version None)
Quarter: 2005Q2

REPORT INFORMATION
  Report Type: 
  Country: None (occurrence: None)
  Receive Date: 20050504
  Receipt Date: 20050421
  Transmission Date: 20051028
  Serious: Yes (Death, Life-Threatening, Hospitalization)
  Sender: FDA-Public Use
  Company Number: 2005JP000451

PATIENT
  Age: 49 Year
  Sex: Female

DRUGS (23)
  1. TACROLIMUS (TACROLIMUS CAPSULES) [Suspect]
     Indication: LUNG TRANSPLANT
     Dosage: ORAL
     Route: 048
     Dates: start: 20020423, end: 20020503
  2. TACROLIMUS (TACROLIMUS CAPSULES) [Suspect]
     Indication: LUNG TRANSPLANT
     Dosage: ORAL
     Route: 048
     Dates: start: 20020503
  3. IMURAN [Concomitant]
  4. METHYLPREDNISOLONE SODIUM SUCCINATE(METHYLPREDNISOLONE SODIUM SUCCINAT [Concomitant]
  5. PREDNISONE [Concomitant]
  6. ELCITONIN (ELCATONIN) INJECTION [Concomitant]
  7. MEROPEN (MEROPENEM)INJECTION [Suspect]
  8. HOKUNALIN (TULOBUTEROL HYDROCHLORIDE) TAPE [Concomitant]
  9. BISOLVON (BROMHEXINE HYDROCHLORIDE) [Concomitant]
  10. ALOTEC (ORCIPRENALINE SULFATE) INHALATION [Concomitant]
  11. COLYMYCIN (COLISTIN MESILATE SODIUM) INHALATION [Concomitant]
  12. FUNGIZONE [Suspect]
  13. ASTAT (LANOCONAZOLE) SOLUTION [Concomitant]
  14. NIZORAL (KETOCONAZOLE) CREAM [Concomitant]
  15. RULID (ROXITHROMYCIN) TABLET [Concomitant]
  16. DIFLUCAN (FLUCONAZOLE) CAPSULE [Concomitant]
  17. ZANTAC (RANTIDINE HYDROCHLORIDE ) TABLET [Concomitant]
  18. ZOLPIDEM TARTRATE [Concomitant]
  19. COTRIM [Interacting]
  20. AMBOBAN (ZOPLICONE) [Concomitant]
  21. DOGMATYL (SULPIRIDE0 [Concomitant]
  22. LORAZEPAM [Concomitant]
  23. VASOLAN (VERAPAMIL HYDROCHLORIDE) TABLET [Concomitant]

REACTIONS (3)
  - DIFFUSE PANBRONCHIOLITIS [None]
  - PNEUMONIA [None]
  - PYOTHORAX [None]
